FAERS Safety Report 5534672-5 (Version None)
Quarter: 2007Q4

REPORT INFORMATION
  Report Type: 
  Country: None (occurrence: None)
  Receive Date: 20071205
  Receipt Date: 20071123
  Transmission Date: 20080405
  Serious: Yes (Hospitalization)
  Sender: FDA-Public Use
  Company Number: FR-SANOFI-SYNTHELABO-A02200703508

PATIENT
  Sex: Female

DRUGS (5)
  1. ZOLPIDEM TARTRATE [Suspect]
     Indication: INSOMNIA
     Route: 048
     Dates: start: 20070801, end: 20070814
  2. TERALITHE [Suspect]
     Indication: DRUG USE FOR UNKNOWN INDICATION
     Route: 048
  3. RIVOTRIL [Suspect]
     Indication: INSOMNIA
     Dosage: 7 MG
     Route: 048
     Dates: start: 20070801, end: 20070820
  4. NOCTRAN [Suspect]
     Indication: INSOMNIA
     Route: 048
     Dates: start: 20070801, end: 20070820
  5. OXAZEPAM [Suspect]
     Indication: INSOMNIA
     Route: 048
     Dates: start: 20070801, end: 20070808

REACTIONS (3)
  - FALL [None]
  - HAEMATOMA [None]
  - OEDEMA [None]
